FAERS Safety Report 7574472-8 (Version None)
Quarter: 2011Q2

REPORT INFORMATION
  Report Type: 
  Country: None (occurrence: None)
  Receive Date: 20110627
  Receipt Date: 20110107
  Transmission Date: 20111010
  Serious: Yes (Hospitalization, Other)
  Sender: FDA-Public Use
  Company Number: US-BAYER-201034591NA

PATIENT
  Age: 19 Year
  Sex: Female
  Weight: 60.317 kg

DRUGS (19)
  1. SERTRALINE HYDROCHLORIDE [Concomitant]
  2. BELLADONNA AND PHENOBARBITONE [Concomitant]
     Dosage: UNK
     Dates: start: 20060925
  3. OMACOR [Concomitant]
  4. TYLENOL-500 [Concomitant]
  5. YASMIN [Suspect]
     Indication: PRODUCT USED FOR UNKNOWN INDICATION
     Dates: start: 20070501
  6. XOPENEX [Concomitant]
  7. OMEPRAZOLE [Concomitant]
     Dosage: UNK
     Dates: start: 20060925
  8. PROMETHAZINE [Concomitant]
     Dosage: UNK
     Dates: start: 20060925
  9. TANDEM [Concomitant]
  10. SINGULAIR [Concomitant]
  11. PRILOSEC [Concomitant]
  12. POLYETHYLENE GLYCOL [Concomitant]
     Dosage: UNK
     Dates: start: 20050629
  13. ADVIL LIQUI-GELS [Concomitant]
  14. YAZ [Suspect]
     Indication: ORAL CONTRACEPTION
     Dosage: UNK
     Dates: start: 20080201
  15. MULTI-VITAMINS [Concomitant]
  16. NAPROXEN (ALEVE) [Concomitant]
  17. FERROUS SULFATE TAB [Concomitant]
     Dosage: UNK
     Dates: start: 20050629
  18. FEMCON FE [Concomitant]
  19. ZOLOFT [Concomitant]
     Indication: DEPRESSION

REACTIONS (7)
  - GALLBLADDER NON-FUNCTIONING [None]
  - BILIARY DYSKINESIA [None]
  - ABDOMINAL PAIN UPPER [None]
  - PAIN [None]
  - ABNORMAL WEIGHT GAIN [None]
  - ABDOMINAL DISTENSION [None]
  - NAUSEA [None]
